FAERS Safety Report 5688161-8 (Version None)
Quarter: 2008Q1

REPORT INFORMATION
  Report Type: 
  Country: None (occurrence: None)
  Receive Date: 20080327
  Receipt Date: 20080313
  Transmission Date: 20080703
  Serious: Yes (Other)
  Sender: FDA-Public Use
  Company Number: KADN20080015

PATIENT
  Age: 66 Year
  Sex: Male

DRUGS (3)
  1. KADIAN [Suspect]
     Indication: CANCER PAIN
     Dosage: 20 MG, 1 CAP DAILY, PER ORAL
     Route: 048
     Dates: start: 20070907, end: 20070920
  2. LOXOPROFEN [Suspect]
     Dates: end: 20070920
  3. DICLOFENAC SODIUM [Suspect]
     Dosage: PER RECTAL
     Route: 054
     Dates: end: 20070920

REACTIONS (2)
  - BLOOD POTASSIUM INCREASED [None]
  - RENAL IMPAIRMENT [None]
